FAERS Safety Report 17367376 (Version 1)
Quarter: 2020Q1

REPORT INFORMATION
  Report Type: Spontaneous
  Country: FR (occurrence: FR)
  Receive Date: 20200204
  Receipt Date: 20200204
  Transmission Date: 20200409
  Serious: Yes (Disabling)
  Sender: FDA-Public Use
  Company Number: FR-PFIZER INC-2020041112

PATIENT
  Age: 58 Year
  Sex: Female
  Weight: 66 kg

DRUGS (5)
  1. PACLITAXEL. [Suspect]
     Active Substance: PACLITAXEL
     Indication: OVARIAN CANCER
     Dosage: 294 MG, EVERY 3 WEEKS
     Route: 042
     Dates: start: 20190410, end: 20190917
  2. CARBOPLATIN. [Suspect]
     Active Substance: CARBOPLATIN
     Indication: OVARIAN CANCER
     Dosage: 647 MG, EVERY 3 WEEKS
     Route: 042
     Dates: start: 20190410, end: 20190917
  3. AVASTIN [Suspect]
     Active Substance: BEVACIZUMAB
     Indication: OVARIAN CANCER
     Dosage: 990 MG, EVERY 3 WEEKS (990 MG FOR TREATMENT EVERY 21 DAYS)
     Route: 042
     Dates: start: 20190827, end: 20191029
  4. PARACETAMOL [Concomitant]
     Active Substance: ACETAMINOPHEN
     Indication: ABDOMINAL PAIN
     Dosage: 1000 MG, AS NEEDED
     Route: 048
     Dates: start: 20190410
  5. PHLOROGLUCINOL [Concomitant]
     Active Substance: PHLOROGLUCINOL
     Indication: ABDOMINAL PAIN
     Dosage: 160 MG, AS NEEDED (80 MG 2X/DAY IF NEEDED)
     Route: 048
     Dates: start: 20190410

REACTIONS (3)
  - Dyschromatopsia [Not Recovered/Not Resolved]
  - Photophobia [Not Recovered/Not Resolved]
  - Visual acuity reduced [Not Recovered/Not Resolved]

NARRATIVE: CASE EVENT DATE: 20191116
